FAERS Safety Report 13419006 (Version 2)
Quarter: 2017Q4

REPORT INFORMATION
  Report Type: Spontaneous
  Country: US (occurrence: US)
  Receive Date: 20170407
  Receipt Date: 20171123
  Transmission Date: 20180320
  Serious: No
  Sender: FDA-Public Use
  Company Number: US-JNJFOC-20170318961

PATIENT
  Sex: Male

DRUGS (2)
  1. RISPERDAL [Suspect]
     Active Substance: RISPERIDONE
     Indication: PARANOIA
     Dosage: VARYING DOSE OF 1.0 MG, 2.0 AND 3.0 MG
     Route: 048
     Dates: start: 20061206, end: 20061228
  2. RISPERDAL [Suspect]
     Active Substance: RISPERIDONE
     Indication: SCHIZOPHRENIA
     Dosage: VARYING DOSE OF 1.0 MG, 2.0 AND 3.0 MG
     Route: 048
     Dates: start: 20061206, end: 20061228

REACTIONS (2)
  - Gynaecomastia [Unknown]
  - Emotional disorder [Unknown]
